FAERS Safety Report 5931488-2 (Version None)
Quarter: 2008Q4

REPORT INFORMATION
  Report Type: 
  Country: None (occurrence: None)
  Receive Date: 20081009
  Receipt Date: 20080624
  Transmission Date: 20090506
  Serious: Yes (Other)
  Sender: FDA-Public Use
  Company Number: PHEH2008US04093

PATIENT
  Age: 55 Year
  Sex: Male

DRUGS (4)
  1. ZOMETA [Suspect]
     Indication: METASTASES TO BONE
     Dosage: 3-4MG, QMONTH, INTRAVENOUS
     Route: 042
     Dates: start: 20070130, end: 20071217
  2. DEXAMETHASONE TAB [Concomitant]
  3. THALIDOMIDE [Concomitant]
  4. VELCADE [Concomitant]

REACTIONS (6)
  - BACTERIAL INFECTION [None]
  - BONE DISORDER [None]
  - GINGIVITIS [None]
  - MOUTH ULCERATION [None]
  - OSTEONECROSIS [None]
  - PAIN IN JAW [None]
